FAERS Safety Report 16628423 (Version 1)
Quarter: 2019Q3

REPORT INFORMATION
  Report Type: Not Available
  Country: US (occurrence: CN)
  Receive Date: 20190724
  Receipt Date: 20190724
  Transmission Date: 20191004
  Serious: No
  Sender: FDA-Public Use
  Company Number: CN-JIANGSU HENGRUI MEDICINE CO., LTD.-2071289

PATIENT
  Age: 20 Year

DRUGS (12)
  1. KYMRIAH [Concomitant]
     Active Substance: TISAGENLECLEUCEL
  2. VINORELBINE [Concomitant]
     Active Substance: VINORELBINE TARTRATE
  3. ARA-C [Concomitant]
     Active Substance: CYTARABINE
  4. DOXORUBICIN HYDROCHLORIDE. [Concomitant]
     Active Substance: DOXORUBICIN HYDROCHLORIDE
  5. GEMCITABINE. [Concomitant]
     Active Substance: GEMCITABINE
  6. CARBOPLATIN. [Concomitant]
     Active Substance: CARBOPLATIN
  7. CYCLOPHOSPHAMIDE FOR INJECTION USP, 500 MG, 1 G AND 2 G PER SINGLE-DOS [Suspect]
     Active Substance: CYCLOPHOSPHAMIDE
     Indication: DIFFUSE LARGE B-CELL LYMPHOMA
  8. DEXAMETHASONE. [Concomitant]
     Active Substance: DEXAMETHASONE
  9. VINCRISTINE [Concomitant]
     Active Substance: VINCRISTINE
  10. PREDNISONE. [Concomitant]
     Active Substance: PREDNISONE
  11. RITUXIMAB. [Concomitant]
     Active Substance: RITUXIMAB
  12. ETOPOSIDE. [Concomitant]
     Active Substance: ETOPOSIDE

REACTIONS (1)
  - Treatment failure [Unknown]
